FAERS Safety Report 17036500 (Version 1)
Quarter: 2019Q4

REPORT INFORMATION
  Report Type: Spontaneous
  Country: US (occurrence: US)
  Receive Date: 20191115
  Receipt Date: 20191115
  Transmission Date: 20200122
  Serious: No
  Sender: FDA-Public Use
  Company Number: US-VERTEX PHARMACEUTICALS-2019-011033

PATIENT
  Age: 2 Year
  Sex: Female
  Weight: 14 kg

DRUGS (2)
  1. PULMOZYME [Concomitant]
     Active Substance: DORNASE ALFA
  2. ORKAMBI [Suspect]
     Active Substance: IVACAFTOR\LUMACAFTOR
     Indication: CYSTIC FIBROSIS
     Dosage: 1 PACKET (100/125 MG) GRANULES IN 5 ML OF FOOD, BID
     Route: 048

REACTIONS (4)
  - Streptococcal infection [Recovering/Resolving]
  - Rhinovirus infection [Recovering/Resolving]
  - Parvovirus infection [Recovering/Resolving]
  - Parainfluenzae virus infection [Recovering/Resolving]

NARRATIVE: CASE EVENT DATE: 20191106
